FAERS Safety Report 17660339 (Version 15)
Quarter: 2022Q4

REPORT INFORMATION
  Report Type: Spontaneous
  Country: US (occurrence: US)
  Receive Date: 20200413
  Receipt Date: 20221230
  Transmission Date: 20230112
  Serious: Yes (Disabling, Other)
  Sender: FDA-Public Use
  Company Number: US-PFIZER INC-2019268231

PATIENT
  Age: 76 Year
  Sex: Female
  Weight: 58.06 kg

DRUGS (2)
  1. XELJANZ [Suspect]
     Active Substance: TOFACITINIB CITRATE
     Indication: Rheumatoid arthritis
     Dosage: 5 MG, 2X/DAY
     Route: 048
     Dates: start: 2017
  2. CBDFX HEMP GUMMIES [Concomitant]
     Dosage: 15 MG, DAILY

REACTIONS (13)
  - Polyp [Unknown]
  - Tooth extraction [Unknown]
  - Mobility decreased [Unknown]
  - Cataract [Unknown]
  - Thrombosis [Unknown]
  - Musculoskeletal disorder [Unknown]
  - Pain in extremity [Not Recovered/Not Resolved]
  - Anxiety [Unknown]
  - Muscular weakness [Unknown]
  - Blood pressure abnormal [Unknown]
  - Hand deformity [Unknown]
  - Dehydration [Unknown]
  - Pain [Unknown]
